FAERS Safety Report 25584144 (Version 1)
Quarter: 2025Q3

REPORT INFORMATION
  Report Type: Other
  Country: CN (occurrence: CN)
  Receive Date: 20250721
  Receipt Date: 20250721
  Transmission Date: 20251021
  Serious: Yes (Other)
  Sender: QILU PHARMACEUTICAL (HAINAN) CO., LTD.
  Company Number: CN-QILU PHARMACEUTICAL (HAINAN) CO.  LTD.-QLH-000220-2025

PATIENT
  Age: 63 Year
  Sex: Female
  Weight: 72 kg

DRUGS (4)
  1. IRINOTECAN HYDROCHLORIDE [Suspect]
     Active Substance: IRINOTECAN HYDROCHLORIDE
     Indication: Lung neoplasm malignant
     Dosage: 110 MG ONCE DAILY ON DAY 1
     Route: 041
     Dates: start: 20250619, end: 20250619
  2. IRINOTECAN HYDROCHLORIDE [Suspect]
     Active Substance: IRINOTECAN HYDROCHLORIDE
     Dosage: 110 MG ONCE DAILY ON DAY 8
     Route: 041
     Dates: start: 20250627, end: 20250627
  3. NEDAPLATIN [Suspect]
     Active Substance: NEDAPLATIN
     Indication: Lung neoplasm malignant
     Dosage: 65 MG ONCE DAILY ON DAYS 1 AND 2
     Route: 041
     Dates: start: 20250619, end: 20250620
  4. ADEBRELIMAB [Suspect]
     Active Substance: ADEBRELIMAB
     Indication: Lung neoplasm malignant
     Dosage: 1200 MG ONCE DAILY
     Route: 041
     Dates: start: 20250618, end: 20250618

REACTIONS (2)
  - Sudden hearing loss [Not Recovered/Not Resolved]
  - Off label use [Unknown]

NARRATIVE: CASE EVENT DATE: 20250619
